FAERS Safety Report 4483494-5 (Version None)
Quarter: 2004Q4

REPORT INFORMATION
  Report Type: 
  Country: None (occurrence: None)
  Receive Date: 20041019
  Receipt Date: 20041019
  Transmission Date: 20050328
  Serious: Yes (Hospitalization)
  Sender: FDA-Public Use
  Company Number: None

PATIENT
  Age: 59 Year
  Sex: Male
  Weight: 60 kg

DRUGS (8)
  1. ATENOLOL [Suspect]
     Indication: BLOOD PRESSURE
     Dosage: 25MG  QAM   ORAL
     Route: 048
  2. TERAZOSIN HCL [Suspect]
     Indication: BENIGN PROSTATIC HYPERPLASIA
     Dosage: 2 MG   QHS    ORAL
     Route: 048
  3. ASPIRIN [Concomitant]
  4. BUPROPION HCL [Concomitant]
  5. HYDROXYZINE [Concomitant]
  6. NICOTINE [Concomitant]
  7. SULINDAC [Concomitant]
  8. TRAZODONE HCL [Concomitant]

REACTIONS (8)
  - BLOOD PRESSURE DIASTOLIC DECREASED [None]
  - CHEST PAIN [None]
  - DIZZINESS POSTURAL [None]
  - DYSPNOEA [None]
  - HEART RATE DECREASED [None]
  - IATROGENIC INJURY [None]
  - PALPITATIONS [None]
  - VISION BLURRED [None]
